FAERS Safety Report 16663857 (Version 1)
Quarter: 2019Q3

REPORT INFORMATION
  Report Type: Spontaneous
  Country: US (occurrence: US)
  Receive Date: 20190619
  Receipt Date: 20190619
  Transmission Date: 20191004
  Serious: No
  Sender: FDA-Public Use
  Company Number: None

PATIENT
  Age: 62 Year
  Sex: Female

DRUGS (1)
  1. ENBREL [Suspect]
     Active Substance: ETANERCEPT
     Indication: RHEUMATOID ARTHRITIS
     Dosage: ?          OTHER FREQUENCY:OTHER;?
     Route: 058
     Dates: start: 201904

REACTIONS (5)
  - Injection site pain [None]
  - Device issue [None]
  - Gallbladder operation [None]
  - Therapy cessation [None]
  - Pancreatitis [None]

NARRATIVE: CASE EVENT DATE: 20190619
